FAERS Safety Report 6088465-3 (Version None)
Quarter: 2009Q1

REPORT INFORMATION
  Report Type: 
  Country: None (occurrence: None)
  Receive Date: 20090224
  Receipt Date: 20090213
  Transmission Date: 20090719
  Serious: Yes (Other)
  Sender: FDA-Public Use
  Company Number: CA-JNJFOC-20081200180

PATIENT
  Age: 45 Year
  Sex: Female
  Weight: 70 kg

DRUGS (15)
  1. REMICADE [Suspect]
     Route: 042
  2. REMICADE [Suspect]
     Route: 042
  3. REMICADE [Suspect]
     Dosage: INFUSIONS GIVEN EVERY 6 WEEKS ON UNKNOWN DATES
     Route: 042
  4. REMICADE [Suspect]
     Indication: ANKYLOSING SPONDYLITIS
     Route: 042
  5. HUMIRA [Suspect]
     Indication: DRUG USE FOR UNKNOWN INDICATION
  6. VITAMIN B-12 [Concomitant]
  7. RESTORIL [Concomitant]
  8. CALCIUM + VITAMIN D [Concomitant]
  9. LOVAZA [Concomitant]
  10. ESTROGEL [Concomitant]
  11. SUPEUDOL [Concomitant]
  12. IMODIUM [Concomitant]
  13. FOSAMAX [Concomitant]
  14. PREVACID [Concomitant]
  15. WELLBUTRIN [Concomitant]

REACTIONS (2)
  - CHEST X-RAY ABNORMAL [None]
  - COUGH [None]
